FAERS Safety Report 10744871 (Version 1)
Quarter: 2015Q1

REPORT INFORMATION
  Report Type: Spontaneous
  Country: US (occurrence: None)
  Receive Date: 20150120
  Receipt Date: 20150120
  Transmission Date: 20150721
  Serious: No
  Sender: FDA-Public Use
  Company Number: AEGR000869

PATIENT
  Age: 80 Year
  Sex: Female

DRUGS (22)
  1. NORCO (HYDROCODONE BITARTRATE, PARACETAMOL) [Concomitant]
  2. KLOR-CON (POTASSIUM CHLORIDE) [Concomitant]
  3. LYRICA (PREGABLAIN) [Concomitant]
  4. JUXTAPID [Suspect]
     Active Substance: LOMITAPIDE MESYLATE
     Indication: TYPE IIA HYPERLIPIDAEMIA
     Route: 048
     Dates: start: 201410, end: 20141105
  5. FISH OIL [Concomitant]
     Active Substance: FISH OIL
  6. VITAMIN D (COLECALCIFEROL) [Concomitant]
  7. LANTUS [Concomitant]
     Active Substance: INSULIN GLARGINE
  8. QVAR (BECLOMETASONE DIPROPIONATE) [Concomitant]
  9. ZOLOFT [Concomitant]
     Active Substance: SERTRALINE HYDROCHLORIDE
  10. COENZYME (UBIDECARENONE) [Concomitant]
     Active Substance: UBIDECARENONE
  11. PROTONIX [Concomitant]
     Active Substance: PANTOPRAZOLE SODIUM
  12. CARVEDILOL. [Concomitant]
     Active Substance: CARVEDILOL
  13. ALBUTEROL (SALBUTAMOL SULFATE) [Concomitant]
  14. AEROSOL (SPRAY AND INHALATION) [Concomitant]
  15. RHINOCORT AQUA (BUDESONIDE) [Concomitant]
  16. HUMALOG [Concomitant]
     Active Substance: INSULIN LISPRO
  17. NORVASC [Concomitant]
     Active Substance: AMLODIPINE BESYLATE
  18. SYNTHROID [Concomitant]
     Active Substance: LEVOTHYROXINE SODIUM
  19. XANAX [Concomitant]
     Active Substance: ALPRAZOLAM
  20. ZANTAC [Concomitant]
     Active Substance: RANITIDINE HYDROCHLORIDE
  21. FLONASE [Concomitant]
     Active Substance: FLUTICASONE PROPIONATE
  22. VISTARIL (HYDROXYZINE HYDROCHLORIDE) [Concomitant]
     Active Substance: HYDROXYZINE HYDROCHLORIDE

REACTIONS (7)
  - Pain [None]
  - Therapy cessation [None]
  - Pain in extremity [None]
  - Urticaria [None]
  - Dyspnoea [None]
  - Lip swelling [None]
  - Back pain [None]

NARRATIVE: CASE EVENT DATE: 201410
